FAERS Safety Report 7781560-X (Version None)
Quarter: 2011Q3

REPORT INFORMATION
  Report Type: 
  Country: None (occurrence: None)
  Receive Date: 20110927
  Receipt Date: 20110921
  Transmission Date: 20111222
  Serious: Yes (Hospitalization)
  Sender: FDA-Public Use
  Company Number: IT-ABBOTT-11P-083-0856948-00

PATIENT
  Age: 34 Year
  Sex: Male

DRUGS (5)
  1. DEPAKENE [Suspect]
     Indication: AFFECTIVE DISORDER
     Dosage: 750MG; DAILY
     Route: 048
  2. ALCOHOL [Suspect]
     Indication: INTENTIONAL SELF-INJURY
  3. DEPAKENE [Suspect]
     Dosage: DAILY DOSE: 30 DOSAGE FORM; UNKNOWN
     Route: 048
     Dates: start: 20110405, end: 20110405
  4. RISPERDAL [Concomitant]
     Indication: PRODUCT USED FOR UNKNOWN INDICATION
  5. PROMAZINE HYDROCHLORIDE [Concomitant]
     Indication: PRODUCT USED FOR UNKNOWN INDICATION

REACTIONS (3)
  - ALCOHOL ABUSE [None]
  - INTENTIONAL SELF-INJURY [None]
  - DRUG ABUSE [None]
